FAERS Safety Report 14841947 (Version 2)
Quarter: 2018Q2

REPORT INFORMATION
  Report Type: Spontaneous
  Country: FR (occurrence: FR)
  Receive Date: 20180503
  Receipt Date: 20180528
  Transmission Date: 20180711
  Serious: Yes (Hospitalization)
  Sender: FDA-Public Use
  Company Number: FR-009507513-1804FRA010215

PATIENT
  Sex: Female
  Weight: 110 kg

DRUGS (1)
  1. NEXPLANON [Suspect]
     Active Substance: ETONOGESTREL
     Dosage: 1 IMPLANT
     Route: 059
     Dates: start: 20120208

REACTIONS (6)
  - Complication of device removal [Unknown]
  - Incorrect drug administration duration [Unknown]
  - Device difficult to use [Unknown]
  - Device difficult to use [Unknown]
  - Complication associated with device [Unknown]
  - Device deployment issue [Unknown]

NARRATIVE: CASE EVENT DATE: 2015
